FAERS Safety Report 4539091-6 (Version None)
Quarter: 2004Q4

REPORT INFORMATION
  Report Type: 
  Country: None (occurrence: None)
  Receive Date: 20041222
  Receipt Date: 20041206
  Transmission Date: 20050328
  Serious: Yes (Hospitalization)
  Sender: FDA-Public Use
  Company Number: 2004-05130

PATIENT
  Age: 50 Year
  Sex: Female
  Weight: 81.6 kg

DRUGS (6)
  1. TRAZODONE HYDROCHLORIDE (WATSON LABORATORIES) (TAZODONE HYDROCHLORIDE) [Suspect]
     Indication: SLEEP DISORDER
     Dosage: 300 MG, QHS, ORAL
     Route: 048
     Dates: start: 20010101, end: 20041101
  2. SEROQUEL [Suspect]
  3. TOPAMAX [Concomitant]
  4. LIPITOR [Concomitant]
  5. CLONAZEPAM [Concomitant]
  6. FLUOXETINE [Concomitant]

REACTIONS (5)
  - ABNORMAL BEHAVIOUR [None]
  - DRUG DEPENDENCE [None]
  - DRUG HYPERSENSITIVITY [None]
  - DRUG WITHDRAWAL SYNDROME [None]
  - EOSINOPHILIA [None]
